FAERS Safety Report 8528854-8 (Version None)
Quarter: 2012Q3

REPORT INFORMATION
  Report Type: 
  Country: None (occurrence: None)
  Receive Date: 20120723
  Receipt Date: 20120718
  Transmission Date: 20120928
  Serious: No
  Sender: FDA-Public Use
  Company Number: US-PFIZER INC-2012173927

PATIENT
  Sex: Female

DRUGS (5)
  1. TOPAMAX [Suspect]
     Dosage: UNK
  2. PRAVASTATIN SODIUM [Suspect]
     Dosage: UNK
  3. NASALCROM [Suspect]
     Dosage: UNK
  4. DEMEROL [Suspect]
     Dosage: UNK
  5. MORPHINE SULFATE [Suspect]
     Dosage: UNK

REACTIONS (1)
  - DRUG HYPERSENSITIVITY [None]
